FAERS Safety Report 7901279-1 (Version None)
Quarter: 2011Q4

REPORT INFORMATION
  Report Type: 
  Country: None (occurrence: None)
  Receive Date: 20111108
  Receipt Date: 20111102
  Transmission Date: 20120403
  Serious: No
  Sender: FDA-Public Use
  Company Number: PHHY2011DE42563

PATIENT
  Age: 54 Year
  Sex: Female

DRUGS (3)
  1. OMEPRAZOLE [Concomitant]
  2. TASIGNA [Suspect]
     Dosage: 600 MG, QD
     Route: 048
  3. TASIGNA [Suspect]
     Dosage: 300 MG, QD
     Route: 048
     Dates: start: 20110426

REACTIONS (6)
  - NAUSEA [None]
  - STRESS [None]
  - VOMITING [None]
  - GASTRIC DISORDER [None]
  - CYSTITIS [None]
  - GASTRIC ULCER [None]
